FAERS Safety Report 15335262 (Version 1)
Quarter: 2018Q3

REPORT INFORMATION
  Report Type: Spontaneous
  Country: FR (occurrence: FR)
  Receive Date: 20180830
  Receipt Date: 20180830
  Transmission Date: 20181010
  Serious: Yes (Other)
  Sender: FDA-Public Use
  Company Number: FR-INCYTE CORPORATION-2018IN008474

PATIENT

DRUGS (1)
  1. JAKAVI [Suspect]
     Active Substance: RUXOLITINIB
     Indication: CHRONIC GRAFT VERSUS HOST DISEASE
     Dosage: UNK
     Route: 065
     Dates: start: 201603

REACTIONS (4)
  - Chronic graft versus host disease [Unknown]
  - Graft loss [Unknown]
  - Disease recurrence [Unknown]
  - Refractory cytopenia with multilineage dysplasia [Unknown]
